FAERS Safety Report 20194837 (Version 1)
Quarter: 2021Q4

REPORT INFORMATION
  Report Type: Spontaneous
  Country: PK (occurrence: PK)
  Receive Date: 20211216
  Receipt Date: 20211216
  Transmission Date: 20220303
  Serious: Yes (Other)
  Sender: FDA-Public Use
  Company Number: PK-PFIZER INC-202101735027

PATIENT
  Age: 20 Year
  Sex: Female
  Weight: 45 kg

DRUGS (7)
  1. DEXMEDETOMIDINE HYDROCHLORIDE [Suspect]
     Active Substance: DEXMEDETOMIDINE HYDROCHLORIDE
     Indication: Decubitus ulcer
     Dosage: 50 UG
  2. BUPIVACAINE [Concomitant]
     Active Substance: BUPIVACAINE
     Indication: Decubitus ulcer
     Dosage: 20 ML
  3. LIDOCAINE [Concomitant]
     Active Substance: LIDOCAINE
     Indication: Decubitus ulcer
     Dosage: 40 MG
     Route: 042
  4. KETAMINE [Concomitant]
     Active Substance: KETAMINE
     Indication: Decubitus ulcer
     Dosage: 20 MG
  5. OXYGEN [Concomitant]
     Active Substance: OXYGEN
     Indication: Decubitus ulcer
     Dosage: 60 MG
  6. ATRACURIUM [Concomitant]
     Active Substance: ATRACURIUM
     Indication: Decubitus ulcer
     Dosage: 20 MG
  7. ISOFLURANE [Concomitant]
     Active Substance: ISOFLURANE
     Indication: Decubitus ulcer
     Dosage: UNK

REACTIONS (2)
  - Somnolence [Recovered/Resolved]
  - Off label use [Unknown]
